FAERS Safety Report 25320373 (Version 3)
Quarter: 2025Q3

REPORT INFORMATION
  Report Type: Spontaneous
  Country: JP (occurrence: JP)
  Receive Date: 20250515
  Receipt Date: 20250803
  Transmission Date: 20251021
  Serious: Yes (Other)
  Sender: ALEXION PHARMACEUTICALS
  Company Number: JP-ASTRAZENECA-202505JPN004712JP

PATIENT
  Age: 23 Year
  Sex: Male
  Weight: 54.6 kg

DRUGS (22)
  1. ULTOMIRIS [Suspect]
     Active Substance: RAVULIZUMAB-CWVZ
     Indication: Atypical haemolytic uraemic syndrome
     Dates: start: 20240213, end: 20240213
  2. ULTOMIRIS [Suspect]
     Active Substance: RAVULIZUMAB-CWVZ
  3. SOLIRIS [Suspect]
     Active Substance: ECULIZUMAB
     Indication: Atypical haemolytic uraemic syndrome
     Dates: start: 20240129, end: 20240129
  4. PREDONINE [Concomitant]
     Active Substance: PREDNISOLONE
     Indication: Systemic lupus erythematosus
  5. PREDNISOLONE [Concomitant]
     Active Substance: PREDNISOLONE
     Indication: Systemic lupus erythematosus
  6. MIYA-BM [Concomitant]
     Active Substance: CLOSTRIDIUM BUTYRICUM SPORES STRAIN M-55
  7. ATOVAQUONE [Concomitant]
     Active Substance: ATOVAQUONE
  8. VONOPRAZAN FUMARATE [Concomitant]
     Active Substance: VONOPRAZAN FUMARATE
  9. CELLCEPT [Concomitant]
     Active Substance: MYCOPHENOLATE MOFETIL
  10. ATORVASTATIN CALCIUM TRIHYDRATE [Concomitant]
     Active Substance: ATORVASTATIN CALCIUM TRIHYDRATE
  11. BENLYSTA [Concomitant]
     Active Substance: BELIMUMAB
  12. FEXOFENADINE HYDROCHLORIDE [Concomitant]
     Active Substance: FEXOFENADINE HYDROCHLORIDE
  13. FUROSEMIDE [Concomitant]
     Active Substance: FUROSEMIDE
  14. TOLVAPTAN [Concomitant]
     Active Substance: TOLVAPTAN
  15. ALFACALCIDOL [Concomitant]
     Active Substance: ALFACALCIDOL
  16. NIFEDIPINE [Concomitant]
     Active Substance: NIFEDIPINE
  17. MAGNESIUM OXIDE [Concomitant]
     Active Substance: MAGNESIUM OXIDE
  18. FEBUXOSTAT [Concomitant]
     Active Substance: FEBUXOSTAT
  19. DAPRODUSTAT [Concomitant]
     Active Substance: DAPRODUSTAT
  20. OLMESARTAN MEDOXOMIL [Concomitant]
     Active Substance: OLMESARTAN MEDOXOMIL
  21. FILGRASTIM [Concomitant]
     Active Substance: FILGRASTIM
     Dates: start: 20240408, end: 20240408
  22. RITUXAN [Concomitant]
     Active Substance: RITUXIMAB
     Indication: Systemic lupus erythematosus
     Route: 065

REACTIONS (1)
  - Neutrophil count decreased [Unknown]

NARRATIVE: CASE EVENT DATE: 20240227
